FAERS Safety Report 10155921 (Version 1)
Quarter: 2014Q2

REPORT INFORMATION
  Report Type: Spontaneous
  Country: GB (occurrence: GB)
  Receive Date: 20140506
  Receipt Date: 20140506
  Transmission Date: 20141212
  Serious: Yes (Other)
  Sender: FDA-Public Use
  Company Number: GB-B.I. PHARMACEUTICALS,INC./RIDGEFIELD-2014-BI-19512UK

PATIENT
  Age: 67 Year
  Sex: Male
  Weight: 120 kg

DRUGS (14)
  1. TRAJENTA [Suspect]
     Indication: DIABETES MELLITUS
     Route: 048
     Dates: start: 20140128, end: 20140324
  2. ASPIRIN [Concomitant]
     Dosage: 75 MG
     Route: 065
  3. BISOPROLOL [Concomitant]
     Dosage: 2.5 MG
     Route: 065
  4. CO-DYDRAMOL [Concomitant]
     Route: 065
  5. DERMOL [Concomitant]
     Dosage: DOSE PER APPLICATION: 1 DF; DAILY DOSE: 2 DF
     Route: 065
  6. DOUBLEBASE [Concomitant]
     Route: 065
  7. FLUCLOXACILLIN [Concomitant]
     Dosage: 2000 MG
     Route: 065
  8. FUROSEMIDE [Concomitant]
     Dosage: 80 MG
     Route: 065
  9. HUMAN INSULATARD [Concomitant]
     Route: 065
  10. ISOSORBIDE MONONITRATE [Concomitant]
     Dosage: 30 MG
     Route: 065
  11. LANSOPRAZOLE [Concomitant]
     Dosage: 15 MG
     Route: 065
  12. POTASSIUM PERMANGANATE [Concomitant]
     Route: 065
  13. SODIUM BICARBONATE [Concomitant]
     Dosage: 2000 MG
     Route: 065
  14. TICAGRELOR [Concomitant]
     Dosage: 180 MG
     Route: 065

REACTIONS (2)
  - Skin exfoliation [Recovered/Resolved]
  - Eczema [Recovered/Resolved]
